FAERS Safety Report 25928604 (Version 1)
Quarter: 2025Q4

REPORT INFORMATION
  Report Type: Report from Study
  Country: US (occurrence: US)
  Receive Date: 20251016
  Receipt Date: 20251016
  Transmission Date: 20260117
  Serious: Yes (Hospitalization)
  Sender: Unknown Manufacturer
  Company Number: US-IONIS PHARMACEUTICALS, INC.-2025IS003414

PATIENT

DRUGS (1)
  1. TRYNGOLZA [Suspect]
     Active Substance: OLEZARSEN SODIUM
     Indication: Familial hypertriglyceridaemia
     Dosage: 80 MILLIGRAM, Q1M
     Route: 058

REACTIONS (2)
  - Pancreatitis acute [Recovered/Resolved]
  - Blood triglycerides increased [Recovering/Resolving]

NARRATIVE: CASE EVENT DATE: 20250831
